FAERS Safety Report 7081504-2 (Version None)
Quarter: 2010Q4

REPORT INFORMATION
  Report Type: 
  Country: None (occurrence: None)
  Receive Date: 20101102
  Receipt Date: 20101102
  Transmission Date: 20110411
  Serious: Yes (Hospitalization)
  Sender: FDA-Public Use
  Company Number: None

PATIENT
  Age: 62 Year
  Sex: Male
  Weight: 92.7 kg

DRUGS (2)
  1. NAPROXEN [Suspect]
     Indication: OSTEOARTHRITIS
     Dosage: 275 MG BID PO
     Route: 048
     Dates: start: 20100426, end: 20100818
  2. NAPROXEN [Suspect]
     Indication: PAIN
     Dosage: 275 MG BID PO
     Route: 048
     Dates: start: 20100426, end: 20100818

REACTIONS (2)
  - GASTROINTESTINAL HAEMORRHAGE [None]
  - HAEMOGLOBIN DECREASED [None]
